FAERS Safety Report 4454741-0 (Version None)
Quarter: 2004Q3

REPORT INFORMATION
  Report Type: 
  Country: None (occurrence: None)
  Receive Date: 20040920
  Receipt Date: 20040920
  Transmission Date: 20050211
  Serious: Yes (Hospitalization)
  Sender: FDA-Public Use
  Company Number: None

PATIENT
  Age: 65 Year
  Sex: Male
  Weight: 71.6683 kg

DRUGS (5)
  1. CPT-11 (IRINOTECAN) [Suspect]
     Indication: METASTASES TO CENTRAL NERVOUS SYSTEM
     Dosage: 100 MG/M2 DAYS 1, 8, AND 15 OVER 90 IV
     Route: 042
     Dates: start: 20040827
  2. CPT-11 (IRINOTECAN) [Suspect]
     Indication: METASTASES TO CENTRAL NERVOUS SYSTEM
     Dosage: 100 MG/M2 DAYS 1, 8, AND 15 OVER 90 IV
     Route: 042
     Dates: start: 20040902
  3. CPT-11 (IRINOTECAN) [Suspect]
     Indication: METASTASES TO CENTRAL NERVOUS SYSTEM
     Dosage: 100 MG/M2 DAYS 1, 8, AND 15 OVER 90 IV
     Route: 042
     Dates: start: 20040909
  4. RADIATION [Concomitant]
  5. DECADRON [Concomitant]

REACTIONS (3)
  - CHILLS [None]
  - COUGH [None]
  - FEBRILE NEUTROPENIA [None]
